FAERS Safety Report 10592797 (Version 1)
Quarter: 2014Q4

REPORT INFORMATION
  Report Type: Spontaneous
  Country: US (occurrence: None)
  Receive Date: 20141118
  Receipt Date: 20141118
  Transmission Date: 20150529
  Serious: Yes (Other)
  Sender: FDA-Public Use
  Company Number: None

PATIENT
  Age: 81 Year
  Sex: Female
  Weight: 46.72 kg

DRUGS (2)
  1. LEVOTHYROXINE [Suspect]
     Active Substance: LEVOTHYROXINE
     Indication: HYPOTHYROIDISM
     Dosage: 0.075 MG 1 DOSE MORNINGS ON AN EMPTY STOMACH  AS PER ?? THE MANY BRANDS
     Route: 048
     Dates: start: 20080902, end: 20141112
  2. VIT D3 2000 MG [Concomitant]

REACTIONS (6)
  - Inflammation [None]
  - Feeling abnormal [None]
  - Pain [None]
  - Headache [None]
  - Neck pain [None]
  - Posture abnormal [None]
